FAERS Safety Report 7301089-2 (Version None)
Quarter: 2011Q1

REPORT INFORMATION
  Report Type: 
  Country: None (occurrence: None)
  Receive Date: 20110218
  Receipt Date: 20110203
  Transmission Date: 20110831
  Serious: Yes (Disabling, Other)
  Sender: FDA-Public Use
  Company Number: DE-CELGENEUS-062-21880-11020534

PATIENT
  Age: 52 Year
  Sex: Male
  Weight: 71 kg

DRUGS (7)
  1. DEXAMETHASONE [Concomitant]
     Route: 065
     Dates: start: 20090517
  2. DEXAMETHASONE [Concomitant]
     Route: 065
     Dates: start: 20100618
  3. PREDNISOLONE [Concomitant]
     Indication: MULTIPLE MYELOMA
     Route: 065
     Dates: start: 20091001
  4. REVLIMID [Suspect]
     Indication: MULTIPLE MYELOMA
     Route: 048
     Dates: start: 20081106
  5. REVLIMID [Suspect]
     Route: 048
     Dates: start: 20100618
  6. DEXAMETHASONE [Concomitant]
     Indication: MULTIPLE MYELOMA
     Route: 065
     Dates: start: 20081106
  7. REVLIMID [Suspect]
     Route: 048
     Dates: start: 20090517, end: 20091001

REACTIONS (6)
  - MYOPATHY [None]
  - GASTROENTERITIS NOROVIRUS [None]
  - SINUSITIS [None]
  - GRAFT VERSUS HOST DISEASE [None]
  - DIZZINESS [None]
  - POLYNEUROPATHY [None]
